FAERS Safety Report 20817714 (Version 1)
Quarter: 2022Q2

REPORT INFORMATION
  Report Type: Report from Study
  Country: GR (occurrence: GR)
  Receive Date: 20220512
  Receipt Date: 20220512
  Transmission Date: 20220721
  Serious: Yes (Death, Other)
  Sender: FDA-Public Use
  Company Number: GR-JNJFOC-20220442300

PATIENT
  Sex: Male
  Weight: 75 kg

DRUGS (3)
  1. ABIRATERONE [Suspect]
     Active Substance: ABIRATERONE
     Indication: Prostate cancer metastatic
     Dosage: UNK
     Route: 048
  2. PRESIDIN [Concomitant]
     Indication: Hypertension
     Dosage: UNK
     Route: 065
  3. CALCIUM [Concomitant]
     Active Substance: CALCIUM
     Indication: Osteoporosis
     Dosage: UNK
     Route: 065

REACTIONS (3)
  - Myocardial infarction [Fatal]
  - Oedema peripheral [Unknown]
  - Blood pressure increased [Unknown]
